FAERS Safety Report 13336413 (Version 4)
Quarter: 2017Q1

REPORT INFORMATION
  Report Type: Spontaneous
  Country: BR (occurrence: BR)
  Receive Date: 20170315
  Receipt Date: 20170330
  Transmission Date: 20170428
  Serious: Yes (Other)
  Sender: FDA-Public Use
  Company Number: BR-ASTRAZENECA-2017SE17682

PATIENT
  Age: 24835 Day
  Sex: Male
  Weight: 93 kg

DRUGS (7)
  1. LIPITOR [Concomitant]
     Active Substance: ATORVASTATIN CALCIUM
     Indication: ARTERIAL OCCLUSIVE DISEASE
     Dates: start: 201511
  2. ASA [Concomitant]
     Active Substance: ASPIRIN
     Dosage: DAILY (LUNCH)
  3. BRILINTA [Suspect]
     Active Substance: TICAGRELOR
     Indication: SURGERY
     Route: 048
     Dates: end: 201703
  4. GLICLAZIDE [Concomitant]
     Active Substance: GLICLAZIDE
     Indication: DIABETES MELLITUS
  5. ENALAPRIL MALEATE. [Concomitant]
     Active Substance: ENALAPRIL MALEATE
  6. BRILINTA [Suspect]
     Active Substance: TICAGRELOR
     Indication: SURGERY
     Route: 048
     Dates: start: 20170202
  7. ATENOLOL. [Concomitant]
     Active Substance: ATENOLOL
     Indication: BLOOD PRESSURE ABNORMAL
     Dosage: EVERY MORNING

REACTIONS (6)
  - Intentional product misuse [Not Recovered/Not Resolved]
  - Road traffic accident [Recovered/Resolved]
  - Insomnia [Recovered/Resolved]
  - Somnolence [Recovered/Resolved]
  - Nocturnal dyspnoea [Recovered/Resolved]
  - Drug dose omission [Recovered/Resolved]

NARRATIVE: CASE EVENT DATE: 20170212
